FAERS Safety Report 9174950 (Version 1)
Quarter: 2013Q1

REPORT INFORMATION
  Report Type: Spontaneous
  Country: US (occurrence: US)
  Receive Date: 20130320
  Receipt Date: 20130320
  Transmission Date: 20140127
  Serious: No
  Sender: FDA-Public Use
  Company Number: US-TARO-2012P1066689

PATIENT
  Age: 55 Year
  Sex: Female
  Weight: 81.65 kg

DRUGS (6)
  1. FLUOROURACIL [Suspect]
     Route: 061
     Dates: start: 20121101, end: 20121201
  2. FLUOROURACIL [Suspect]
     Route: 061
     Dates: start: 20121101, end: 20121201
  3. FLUOROURACIL [Suspect]
     Route: 061
     Dates: start: 20121101, end: 20121201
  4. SYNTHROID [Concomitant]
  5. MULTIVITAMIN [Concomitant]
  6. AIRBORNE [Concomitant]

REACTIONS (4)
  - Skin irritation [Not Recovered/Not Resolved]
  - Drug dose omission [Not Recovered/Not Resolved]
  - Haemorrhage [Recovering/Resolving]
  - Application site pain [Recovering/Resolving]
